FAERS Safety Report 4728283-9 (Version None)
Quarter: 2005Q3

REPORT INFORMATION
  Report Type: 
  Country: None (occurrence: None)
  Receive Date: 20050727
  Receipt Date: 20050720
  Transmission Date: 20060218
  Serious: Yes (Hospitalization)
  Sender: FDA-Public Use
  Company Number: 215350

PATIENT
  Age: 1 Year
  Sex: Male
  Weight: 4.4 kg

DRUGS (3)
  1. NUTROPIN AQ [Suspect]
     Indication: GROWTH HORMONE DEFICIENCY
     Dosage: UNIT, QD
     Dates: start: 20050610
  2. PREVACID [Concomitant]
  3. MIRALAX [Concomitant]

REACTIONS (1)
  - INJECTION SITE URTICARIA [None]
